FAERS Safety Report 20730481 (Version 1)
Quarter: 2022Q2

REPORT INFORMATION
  Report Type: Spontaneous
  Country: US (occurrence: None)
  Receive Date: 20220420
  Receipt Date: 20220420
  Transmission Date: 20220721
  Serious: Yes (Hospitalization)
  Sender: FDA-Public Use
  Company Number: None

PATIENT
  Age: 67 Year
  Sex: Female
  Weight: 46.49 kg

DRUGS (2)
  1. CARBOPLATIN [Suspect]
     Active Substance: CARBOPLATIN
     Dosage: OTHER QUANTITY : 155 MCMOL;?
     Dates: end: 20220405
  2. TAXOL [Suspect]
     Active Substance: PACLITAXEL
     Dates: end: 20220405

REACTIONS (3)
  - Vomiting [None]
  - Diarrhoea [None]
  - Diaphragmatic hernia [None]

NARRATIVE: CASE EVENT DATE: 20220413
